FAERS Safety Report 13005157 (Version 2)
Quarter: 2016Q4

REPORT INFORMATION
  Report Type: Spontaneous
  Country: RU (occurrence: RU)
  Receive Date: 20161207
  Receipt Date: 20161219
  Transmission Date: 20170207
  Serious: No
  Sender: FDA-Public Use
  Company Number: RU-ASTRAZENECA-2016SF28364

PATIENT
  Age: 85 Year
  Sex: Female

DRUGS (5)
  1. ESCORDI COR [Concomitant]
  2. PHYSIOTENS [Concomitant]
     Active Substance: MOXONIDINE
  3. ATACAND [Suspect]
     Active Substance: CANDESARTAN CILEXETIL
     Indication: HYPERTENSION
     Dosage: 2,4, OR 8 MG IRREGULARLY
     Route: 048
  4. L-THYROXIN [Concomitant]
     Active Substance: LEVOTHYROXINE SODIUM
  5. ATACAND [Suspect]
     Active Substance: CANDESARTAN CILEXETIL
     Indication: HYPERTENSION
     Route: 048

REACTIONS (2)
  - Intentional product misuse [Unknown]
  - Blood pressure abnormal [Not Recovered/Not Resolved]
